FAERS Safety Report 23626246 (Version 2)
Quarter: 2024Q1

REPORT INFORMATION
  Report Type: Spontaneous
  Country: US (occurrence: US)
  Receive Date: 20240313
  Receipt Date: 20240313
  Transmission Date: 20240410
  Serious: Yes (Hospitalization)
  Sender: FDA-Public Use
  Company Number: US-GILEAD-2024-0665091

PATIENT
  Sex: Female

DRUGS (8)
  1. EPCLUSA [Suspect]
     Active Substance: SOFOSBUVIR\VELPATASVIR
     Indication: Chronic hepatitis C
     Dosage: 1 DOSAGE FORM, QD FOR 12 WEEKS
     Route: 048
  2. ALBUTEROL SULFATE [Concomitant]
     Active Substance: ALBUTEROL SULFATE
  3. HYDROCHLOROTHIAZIDE [Concomitant]
     Active Substance: HYDROCHLOROTHIAZIDE
  4. MELOXICAM [Concomitant]
     Active Substance: MELOXICAM
  5. GABAPENTIN [Concomitant]
     Active Substance: GABAPENTIN
  6. LISINOPRIL [Concomitant]
     Active Substance: LISINOPRIL
  7. LANTUS [Concomitant]
     Active Substance: INSULIN GLARGINE
  8. HUMALOG [Concomitant]
     Active Substance: INSULIN LISPRO

REACTIONS (2)
  - Blood glucose abnormal [Unknown]
  - Product dose omission issue [Unknown]
